FAERS Safety Report 8106106-8 (Version None)
Quarter: 2012Q1

REPORT INFORMATION
  Report Type: 
  Country: None (occurrence: None)
  Receive Date: 20120202
  Receipt Date: 20120131
  Transmission Date: 20120608
  Serious: No
  Sender: FDA-Public Use
  Company Number: US-PFIZER INC-2012027479

PATIENT
  Sex: Male
  Weight: 67.574 kg

DRUGS (2)
  1. CHANTIX [Suspect]
     Indication: SMOKING CESSATION THERAPY
     Dosage: 0.5 MG, DAILY
     Route: 048
     Dates: start: 20111201, end: 20111201
  2. CHANTIX [Suspect]
     Dosage: UNK
     Route: 048
     Dates: start: 20111201

REACTIONS (4)
  - NAUSEA [None]
  - GASTRIC DISORDER [None]
  - DISCOMFORT [None]
  - CONSTIPATION [None]
